FAERS Safety Report 7057807-4 (Version None)
Quarter: 2010Q4

REPORT INFORMATION
  Report Type: 
  Country: None (occurrence: None)
  Receive Date: 20101022
  Receipt Date: 20101013
  Transmission Date: 20110411
  Serious: Yes (Other)
  Sender: FDA-Public Use
  Company Number: JP-PFIZER INC-2010129742

PATIENT
  Age: 40 Year
  Sex: Female

DRUGS (2)
  1. SULFASALAZINE [Suspect]
     Dosage: UNK
     Dates: start: 20100401
  2. CELECOXIB [Suspect]
     Dosage: UNK
     Dates: start: 20100401

REACTIONS (2)
  - ANAPHYLACTIC SHOCK [None]
  - DRUG ERUPTION [None]
